FAERS Safety Report 9215164 (Version 1)
Quarter: 2013Q2

REPORT INFORMATION
  Report Type: Spontaneous
  Country: US (occurrence: US)
  Receive Date: 20130405
  Receipt Date: 20130405
  Transmission Date: 20140414
  Serious: Yes (Hospitalization)
  Sender: FDA-Public Use
  Company Number: US-ASTRAZENECA-2013SE21048

PATIENT
  Age: 23855 Day
  Sex: Male

DRUGS (2)
  1. BRILINTA [Suspect]
     Indication: CAROTID ARTERY STENT INSERTION
     Route: 048
  2. BABY ASPIRIN [Concomitant]

REACTIONS (2)
  - Subarachnoid haemorrhage [Recovering/Resolving]
  - Off label use [Recovering/Resolving]
